FAERS Safety Report 10570157 (Version 2)
Quarter: 2014Q4

REPORT INFORMATION
  Report Type: Spontaneous
  Country: GB (occurrence: None)
  Receive Date: 20141105
  Receipt Date: 20141124
  Transmission Date: 20150529
  Serious: Yes (Life-Threatening)
  Sender: FDA-Public Use
  Company Number: 2603331

PATIENT
  Age: 62 Year
  Sex: Female
  Weight: 72 kg

DRUGS (7)
  1. FENTANYL. [Concomitant]
     Active Substance: FENTANYL
  2. MIDAZOLAM [Concomitant]
     Active Substance: MIDAZOLAM\MIDAZOLAM HYDROCHLORIDE
  3. ROCURONIUM BROMIDE. [Suspect]
     Active Substance: ROCURONIUM BROMIDE
     Indication: HYPOTONIA
     Dosage: 40 MG MILLIGRAM(S), UNKNOWN, UNKNOWN?
     Dates: start: 20140717, end: 20140717
  4. LIDOCAINE. [Concomitant]
     Active Substance: LIDOCAINE
  5. ROCURONIUM BROMIDE. [Suspect]
     Active Substance: ROCURONIUM BROMIDE
     Indication: ENDOTRACHEAL INTUBATION
     Dosage: 40 MG MILLIGRAM(S), UNKNOWN, UNKNOWN?
     Dates: start: 20140717, end: 20140717
  6. PROPRFOL [Concomitant]
  7. LEVOBUPIVACAINE [Concomitant]
     Active Substance: LEVOBUPIVACAINE

REACTIONS (2)
  - Cardiac arrest [None]
  - Anaphylactic reaction [None]

NARRATIVE: CASE EVENT DATE: 20140717
